FAERS Safety Report 5171540-5 (Version None)
Quarter: 2006Q4

REPORT INFORMATION
  Report Type: 
  Country: None (occurrence: None)
  Receive Date: 20061213
  Receipt Date: 20060717
  Transmission Date: 20070319
  Serious: Yes (Other)
  Sender: FDA-Public Use
  Company Number: US-AMGEN-STX186451

PATIENT
  Sex: Female
  Weight: 70.4 kg

DRUGS (5)
  1. ENBREL [Suspect]
     Indication: RHEUMATOID ARTHRITIS
     Dates: start: 20060306, end: 20060713
  2. METHOTREXATE [Concomitant]
     Dates: start: 20050826
  3. PLAQUENIL [Concomitant]
     Dates: start: 20051020, end: 20060306
  4. FOLIC ACID [Concomitant]
     Dates: start: 20050826
  5. IBUPROFEN [Concomitant]
     Dates: start: 20040901

REACTIONS (1)
  - BREAST CANCER IN SITU [None]
